FAERS Safety Report 15547423 (Version 1)
Quarter: 2018Q4

REPORT INFORMATION
  Report Type: Report from Study
  Country: US (occurrence: US)
  Receive Date: 20181024
  Receipt Date: 20181024
  Transmission Date: 20190205
  Serious: Yes (Death, Hospitalization)
  Sender: FDA-Public Use
  Company Number: US-ACTELION-A-US2016-133742

PATIENT
  Age: 72 Year
  Sex: Male
  Weight: 64.4 kg

DRUGS (2)
  1. WARFARIN [Concomitant]
     Active Substance: WARFARIN
  2. TRACLEER [Suspect]
     Active Substance: BOSENTAN
     Indication: PULMONARY ARTERIAL HYPERTENSION
     Dosage: 125 MG, BID
     Route: 048

REACTIONS (8)
  - Death [Fatal]
  - Asthenia [Unknown]
  - Pain [Unknown]
  - Motion sickness [Unknown]
  - Hypotension [Unknown]
  - Dyspnoea [Unknown]
  - Syncope [Unknown]
  - Dizziness [Unknown]
